FAERS Safety Report 8263866-3 (Version None)
Quarter: 2012Q2

REPORT INFORMATION
  Report Type: 
  Country: None (occurrence: None)
  Receive Date: 20120405
  Receipt Date: 20120330
  Transmission Date: 20120825
  Serious: Yes (Disabling)
  Sender: FDA-Public Use
  Company Number: GB-MERCK-1202GBR00108

PATIENT
  Age: 81 Year
  Sex: Male
  Weight: 81 kg

DRUGS (5)
  1. WARFARIN SODIUM [Concomitant]
     Route: 065
     Dates: start: 20111020
  2. DOXAZOSIN MESYLATE [Concomitant]
     Route: 065
     Dates: start: 20111020
  3. CARBOMER [Concomitant]
     Route: 065
     Dates: start: 20111020
  4. SOTALOL HYDROCHLORIDE [Concomitant]
     Route: 065
     Dates: start: 20111020
  5. PROSCAR [Suspect]
     Route: 048
     Dates: start: 20111116

REACTIONS (2)
  - URINARY RETENTION [None]
  - URINE FLOW DECREASED [None]
